FAERS Safety Report 9369460 (Version 5)
Quarter: 2015Q1

REPORT INFORMATION
  Report Type: Spontaneous
  Country: TR (occurrence: TR)
  Receive Date: 20130626
  Receipt Date: 20150227
  Transmission Date: 20150721
  Serious: Yes (Hospitalization, Other)
  Sender: FDA-Public Use
  Company Number: PHHY2013TR063866

PATIENT
  Age: 49 Year
  Sex: Male

DRUGS (1)
  1. DICLOFENAC [Suspect]
     Active Substance: DICLOFENAC
     Indication: OROPHARYNGEAL PAIN
     Route: 030

REACTIONS (7)
  - Coronary artery occlusion [Recovered/Resolved]
  - Cardiac arrest [Recovered/Resolved]
  - Kounis syndrome [Recovered/Resolved]
  - Acute myocardial infarction [Unknown]
  - Ventricular fibrillation [Recovered/Resolved]
  - Loss of consciousness [Recovered/Resolved]
  - Pulmonary oedema [Recovered/Resolved]
